FAERS Safety Report 25646835 (Version 1)
Quarter: 2025Q3

REPORT INFORMATION
  Report Type: Spontaneous
  Country: GB (occurrence: GB)
  Receive Date: 20250805
  Receipt Date: 20250805
  Transmission Date: 20251020
  Serious: Yes (Other)
  Sender: TEVA
  Company Number: GB-MHRA-TPP13058790C25101295YC1753432930534

PATIENT
  Age: 84 Year
  Sex: Male
  Weight: 60 kg

DRUGS (20)
  1. ZOLEDRONIC ACID [Suspect]
     Active Substance: ZOLEDRONIC ACID
     Indication: Product used for unknown indication
     Route: 065
  2. OMEPRAZOLE [Concomitant]
     Active Substance: OMEPRAZOLE
     Indication: Ill-defined disorder
     Dates: start: 20250214
  3. ACETAMINOPHEN [Concomitant]
     Active Substance: ACETAMINOPHEN
     Indication: Ill-defined disorder
     Dates: start: 20250521, end: 20250618
  4. CREON [Concomitant]
     Active Substance: PANCRELIPASE AMYLASE\PANCRELIPASE LIPASE\PANCRELIPASE PROTEASE
     Indication: Ill-defined disorder
     Dates: start: 20250214
  5. BENZYDAMINE HYDROCHLORIDE [Concomitant]
     Active Substance: BENZYDAMINE HYDROCHLORIDE
     Indication: Ill-defined disorder
     Dosage: 15ML EVERY 3 HRS, 120 ML DAILY
     Dates: start: 20250214
  6. BIMATOPROST [Concomitant]
     Active Substance: BIMATOPROST
     Indication: Ill-defined disorder
     Dosage: ONE DROP ONCE DAILY TO BOTH EYES IN THE EVENING, 2 DROPS DAILY , PATIENT ROA: OPHTHALMIC
     Dates: start: 20250214
  7. FINASTERIDE [Concomitant]
     Active Substance: FINASTERIDE
     Indication: Ill-defined disorder
     Dosage: TAKE ONE DAILY
     Dates: start: 20250214
  8. SIMBRINZA [Concomitant]
     Active Substance: BRIMONIDINE TARTRATE\BRINZOLAMIDE
     Indication: Ill-defined disorder
     Dates: start: 20250214
  9. ADCAL [Concomitant]
     Indication: Ill-defined disorder
     Dosage: TAKE ONE TABLET TWICE A DAY, 2 DOSAGE FORMS DAILY
     Dates: start: 20250214
  10. FERRIC MALTOL [Concomitant]
     Active Substance: FERRIC MALTOL
     Indication: Ill-defined disorder
     Dosage: TAKE ONE TWICE DAILY, 2 DOSAGE FORMS DAILY
     Dates: start: 20250214
  11. MELOXICAM [Concomitant]
     Active Substance: MELOXICAM
     Indication: Ill-defined disorder
     Dosage: TAKE ONE DAILY
     Dates: start: 20250701
  12. BEVESPI AEROSPHERE [Concomitant]
     Active Substance: FORMOTEROL FUMARATE\GLYCOPYRROLATE
     Indication: Ill-defined disorder
     Dosage: INHALE TWO DOSES TWICE A DAY (PLEASE RETURN YOU..., 4 DOSAGE FORMS DAILY, PATIENT ROA :RESPIRATOR...
     Dates: start: 20250214
  13. HYDROXOCOBALAMIN [Concomitant]
     Active Substance: HYDROXOCOBALAMIN
     Indication: Ill-defined disorder
     Route: 030
     Dates: start: 20250210
  14. GAVISCON [Concomitant]
     Active Substance: ALUMINUM HYDROXIDE\MAGNESIUM CARBONATE
     Indication: Ill-defined disorder
     Dates: start: 20250214, end: 20250512
  15. MIRTAZAPINE [Concomitant]
     Active Substance: MIRTAZAPINE
     Indication: Ill-defined disorder
     Dosage: TAKE ONE TABLET AT BEDTIME, 1 DOSAGE FORMS DAILY
     Dates: start: 20250311
  16. ATORVASTATIN [Concomitant]
     Active Substance: ATORVASTATIN
     Indication: Ill-defined disorder
     Dosage: TAKE ONE TABLET ONCE A DAY, 1 DOSAGE FORMS DAILY
     Dates: start: 20250214
  17. TAMSULOSIN HYDROCHLORIDE [Concomitant]
     Active Substance: TAMSULOSIN HYDROCHLORIDE
     Indication: Ill-defined disorder
     Dosage: TAKE ONE DAILY
     Dates: start: 20250214
  18. CARBOCYSTEINE [Concomitant]
     Active Substance: CARBOCYSTEINE
     Indication: Ill-defined disorder
     Dosage: TAKE TWO CAPSULES TWICE A DAY TO REDUCE MUCUS O..., 4 DOSAGE FORMS DAILY
     Dates: start: 20250304
  19. FUROSEMIDE [Concomitant]
     Active Substance: FUROSEMIDE
     Indication: Ill-defined disorder
     Dosage: TAKE ONE EACH MORNING, 1 DOSAGE FORMS DAILY
     Dates: start: 20250701
  20. NAPROXEN [Concomitant]
     Active Substance: NAPROXEN
     Indication: Ill-defined disorder
     Dates: start: 20250430, end: 20250528

REACTIONS (3)
  - Peripheral swelling [Not Recovered/Not Resolved]
  - Oedema [Unknown]
  - Pain in jaw [Unknown]
